FAERS Safety Report 9395474 (Version 2)
Quarter: 2013Q3

REPORT INFORMATION
  Report Type: Spontaneous
  Country: US (occurrence: US)
  Receive Date: 20130711
  Receipt Date: 20130802
  Transmission Date: 20140515
  Serious: Yes (Other)
  Sender: FDA-Public Use
  Company Number: US-ASTELLAS-2013US007234

PATIENT
  Sex: Male

DRUGS (9)
  1. MYRBETRIQ [Suspect]
     Indication: POLLAKIURIA
     Dosage: UNK
     Route: 048
     Dates: start: 20130506, end: 20130603
  2. MYRBETRIQ [Suspect]
     Indication: MICTURITION URGENCY
  3. MYRBETRIQ [Suspect]
     Indication: URGE INCONTINENCE
  4. LISINOPRIL HCTZ [Concomitant]
     Indication: PRODUCT USED FOR UNKNOWN INDICATION
     Dosage: 20/12.5
     Route: 065
  5. ASPIRIN [Concomitant]
     Indication: PRODUCT USED FOR UNKNOWN INDICATION
     Dosage: 325 UNK, UNKNOWN/D
     Route: 065
  6. SIMVASTATIN [Concomitant]
     Indication: PRODUCT USED FOR UNKNOWN INDICATION
     Dosage: 40 MG, UNKNOWN/D
     Route: 065
  7. METOPROLOL [Concomitant]
     Indication: PRODUCT USED FOR UNKNOWN INDICATION
     Dosage: 100 UNK, UNKNOWN/D
     Route: 065
  8. TAMSULOSIN [Concomitant]
     Indication: PRODUCT USED FOR UNKNOWN INDICATION
     Dosage: 0.4 MG, UNKNOWN/D
     Route: 065
  9. STOOL SOFTENER [Concomitant]
     Indication: PRODUCT USED FOR UNKNOWN INDICATION
     Dosage: UNK
     Route: 065

REACTIONS (1)
  - Rash generalised [Recovered/Resolved]
